FAERS Safety Report 6732686-0 (Version None)
Quarter: 2010Q2

REPORT INFORMATION
  Report Type: 
  Country: None (occurrence: None)
  Receive Date: 20100519
  Receipt Date: 20091027
  Transmission Date: 20101027
  Serious: Yes (Other)
  Sender: FDA-Public Use
  Company Number: US-BRISTOL-MYERS SQUIBB COMPANY-14833594

PATIENT
  Age: 55 Year
  Sex: Male

DRUGS (4)
  1. BARACLUDE [Suspect]
     Indication: HEPATITIS B
     Dosage: INITIATED AT 0.5MG QD
     Route: 048
  2. DIOVAN [Concomitant]
  3. SINGULAIR [Concomitant]
  4. ZOLOFT [Concomitant]

REACTIONS (3)
  - FATIGUE [None]
  - HEADACHE [None]
  - LIVER INJURY [None]
